FAERS Safety Report 10063219 (Version 1)
Quarter: 2014Q2

REPORT INFORMATION
  Report Type: Spontaneous
  Country: AU (occurrence: AU)
  Receive Date: 20140407
  Receipt Date: 20140407
  Transmission Date: 20141212
  Serious: Yes (Other)
  Sender: FDA-Public Use
  Company Number: AU-ASTELLAS-2014US003457

PATIENT
  Age: 52 Year
  Sex: Male

DRUGS (2)
  1. AMBISOME [Suspect]
     Indication: MUCOCUTANEOUS LEISHMANIASIS
     Dosage: UNK
     Route: 042
  2. PENTOSTAM [Suspect]
     Indication: MUCOCUTANEOUS LEISHMANIASIS
     Dosage: UNK
     Route: 065

REACTIONS (3)
  - Pancreatitis [Unknown]
  - Hepatitis [Unknown]
  - Renal failure [Unknown]
